FAERS Safety Report 5509963-4 (Version None)
Quarter: 2007Q4

REPORT INFORMATION
  Report Type: 
  Country: None (occurrence: None)
  Receive Date: 20071107
  Receipt Date: 20071107
  Transmission Date: 20080405
  Serious: Yes (Other)
  Sender: FDA-Public Use
  Company Number: None

PATIENT
  Sex: Male

DRUGS (1)
  1. XOLAIR [Suspect]
     Indication: ASTHMA
     Dosage: INJECT 300MG-2DIFFERENT EVERY 4 WEEKS SQ
     Route: 058
     Dates: start: 20071017

REACTIONS (2)
  - INJECTION SITE RASH [None]
  - INJECTION SITE WARMTH [None]
